FAERS Safety Report 6068228-5 (Version None)
Quarter: 2009Q1

REPORT INFORMATION
  Report Type: 
  Country: None (occurrence: None)
  Receive Date: 20090206
  Receipt Date: 20090123
  Transmission Date: 20090719
  Serious: Yes (Other)
  Sender: FDA-Public Use
  Company Number: US-BAYER-200912388GPV

PATIENT
  Age: 37 Year
  Sex: Female

DRUGS (6)
  1. ALEMTUZUMAB [Suspect]
     Indication: MULTIPLE SCLEROSIS
     Route: 042
     Dates: start: 20090119, end: 20090121
  2. ALEMTUZUMAB [Suspect]
     Route: 042
     Dates: start: 20090128
  3. METHYLPREDNISOLONE 4MG TAB [Concomitant]
     Dates: start: 20090119, end: 20090121
  4. DEXCHLORPHENIRAMINE [Concomitant]
     Dates: start: 20090119
  5. PARACETAMOL WITH CODEINE PHOSPHATE [Concomitant]
     Dates: start: 20090119
  6. RANITIDINE [Concomitant]
     Dates: start: 20090119

REACTIONS (3)
  - ABDOMINAL PAIN [None]
  - CHOLECYSTITIS ACUTE [None]
  - GALLBLADDER DISORDER [None]
